FAERS Safety Report 15952120 (Version 4)
Quarter: 2020Q4

REPORT INFORMATION
  Report Type: Spontaneous
  Country: US (occurrence: US)
  Receive Date: 20190212
  Receipt Date: 20201102
  Transmission Date: 20210113
  Serious: No
  Sender: FDA-Public Use
  Company Number: US-SA-2019SA035964

PATIENT

DRUGS (2)
  1. AUBAGIO [Suspect]
     Active Substance: TERIFLUNOMIDE
     Dosage: 14 MG
     Route: 048
     Dates: start: 201909
  2. AUBAGIO [Suspect]
     Active Substance: TERIFLUNOMIDE
     Indication: MULTIPLE SCLEROSIS
     Dosage: 14 MG, QD
     Route: 048
     Dates: start: 20181110

REACTIONS (7)
  - Alopecia [Unknown]
  - Muscular weakness [Unknown]
  - Pain in extremity [Unknown]
  - Burning sensation [Unknown]
  - Drug ineffective [Unknown]
  - Peripheral swelling [Unknown]
  - Paraesthesia [Unknown]
